FAERS Safety Report 6523935-2 (Version None)
Quarter: 2009Q4

REPORT INFORMATION
  Report Type: 
  Country: None (occurrence: None)
  Receive Date: 20091231
  Receipt Date: 20091223
  Transmission Date: 20100525
  Serious: Yes (Other)
  Sender: FDA-Public Use
  Company Number: BR-ABBOTT-09P-020-0616398-00

PATIENT
  Sex: Female
  Weight: 20 kg

DRUGS (2)
  1. KLARICID SUSPENSION [Suspect]
     Indication: PHARYNGITIS
     Dosage: 250MG/5ML, 5 ML EVERY 12 HOURS
     Route: 048
  2. KLARICID SUSPENSION [Suspect]

REACTIONS (5)
  - ABDOMINAL PAIN UPPER [None]
  - DIARRHOEA [None]
  - EAR PAIN [None]
  - HALLUCINATION [None]
  - HYPOTHERMIA [None]
